FAERS Safety Report 24583464 (Version 1)
Quarter: 2024Q4

REPORT INFORMATION
  Report Type: Spontaneous
  Country: US (occurrence: US)
  Receive Date: 20241106
  Receipt Date: 20241106
  Transmission Date: 20250115
  Serious: No
  Sender: ROCHE
  Company Number: US-ROCHE-10000122627

PATIENT
  Sex: Female

DRUGS (2)
  1. XOLAIR PFS [Suspect]
     Active Substance: OMALIZUMAB
     Indication: Nasal polyps
     Dosage: STRENGTH: 300MG/2ML.
     Route: 058
     Dates: start: 202408
  2. XOLAIR PFS [Suspect]
     Active Substance: OMALIZUMAB
     Dosage: STRENGTH: 150MG/ML.
     Route: 058
     Dates: start: 202408

REACTIONS (3)
  - Dizziness [Unknown]
  - Meniere^s disease [Unknown]
  - Vertigo [Unknown]
